FAERS Safety Report 8589315-3 (Version None)
Quarter: 2012Q3

REPORT INFORMATION
  Report Type: 
  Country: None (occurrence: None)
  Receive Date: 20120813
  Receipt Date: 20120806
  Transmission Date: 20120928
  Serious: Yes (Death)
  Sender: FDA-Public Use
  Company Number: KR-BAXTER-2012BAX013917

PATIENT
  Age: 46 Year
  Sex: Female

DRUGS (3)
  1. ETOPOSIDE [Concomitant]
     Indication: OVARIAN CANCER
     Route: 042
  2. IFOSFAMIDE [Suspect]
     Indication: OVARIAN CANCER
     Route: 042
  3. MESNA [Concomitant]
     Indication: OVARIAN CANCER

REACTIONS (2)
  - RENAL TUBULAR NECROSIS [None]
  - ENCEPHALOPATHY [None]
